FAERS Safety Report 20469513 (Version 1)
Quarter: 2022Q1

REPORT INFORMATION
  Report Type: Spontaneous
  Country: PL (occurrence: PL)
  Receive Date: 20220214
  Receipt Date: 20220214
  Transmission Date: 20220423
  Serious: Yes (Death, Life-Threatening, Hospitalization, Other)
  Sender: FDA-Public Use
  Company Number: None

PATIENT

DRUGS (16)
  1. DACTINOMYCIN [Suspect]
     Active Substance: DACTINOMYCIN
     Indication: Extra-osseous Ewing^s sarcoma
     Dosage: CEVAIE CHEMOTHERAPY
     Route: 065
  2. DACTINOMYCIN [Suspect]
     Active Substance: DACTINOMYCIN
     Dosage: VAI REGIMEN
  3. CARBOPLATIN [Suspect]
     Active Substance: CARBOPLATIN
     Indication: Extra-osseous Ewing^s sarcoma
     Dosage: UNK (CEVAIE CHEMOTHERAPY)
     Route: 065
  4. ETOPOSIDE [Suspect]
     Active Substance: ETOPOSIDE
     Indication: Extra-osseous Ewing^s sarcoma
     Dosage: VIDE REGIMEN
     Route: 065
  5. ETOPOSIDE [Suspect]
     Active Substance: ETOPOSIDE
     Dosage: CEVAIE CHEMOTHERAPY
     Route: 065
  6. IFOSFAMIDE [Suspect]
     Active Substance: IFOSFAMIDE
     Indication: Extra-osseous Ewing^s sarcoma
     Dosage: CEVAIE CHEMOTHERAPY
     Route: 065
  7. IFOSFAMIDE [Suspect]
     Active Substance: IFOSFAMIDE
     Dosage: VIDE REGIMEN
     Route: 065
  8. IFOSFAMIDE [Suspect]
     Active Substance: IFOSFAMIDE
     Dosage: VAI CHEMOTHERAPY
     Route: 065
  9. TEMOZOLOMIDE [Suspect]
     Active Substance: TEMOZOLOMIDE
     Indication: Extra-osseous Ewing^s sarcoma
     Route: 065
  10. VINCRISTINE [Suspect]
     Active Substance: VINCRISTINE
     Indication: Extra-osseous Ewing^s sarcoma
     Dosage: VAI REGIMEN
     Route: 065
  11. VINCRISTINE [Suspect]
     Active Substance: VINCRISTINE
     Dosage: VIDE REGIMEN
     Route: 065
  12. VINCRISTINE [Suspect]
     Active Substance: VINCRISTINE
     Dosage: CEVAIE CHEMOTHERAPY
     Route: 065
  13. VINCRISTINE [Suspect]
     Active Substance: VINCRISTINE
     Dosage: UNK
     Route: 065
  14. IRINOTECAN [Suspect]
     Active Substance: IRINOTECAN
     Indication: Extra-osseous Ewing^s sarcoma
     Route: 065
  15. EPIRUBICIN [Suspect]
     Active Substance: EPIRUBICIN
     Indication: Extra-osseous Ewing^s sarcoma
     Dosage: CEVAIE CHEMOTHERAPY
     Route: 065
  16. DOXORUBICIN [Suspect]
     Active Substance: DOXORUBICIN
     Indication: Extra-osseous Ewing^s sarcoma
     Dosage: VIDE REGIMEN
     Route: 065

REACTIONS (8)
  - Systemic candida [Fatal]
  - Oesophageal hypomotility [Unknown]
  - Neutropenia [Not Recovered/Not Resolved]
  - Vomiting [Unknown]
  - Febrile neutropenia [Unknown]
  - Myelosuppression [Unknown]
  - Gastrointestinal disorder [Unknown]
  - Drug ineffective [Recovered/Resolved]
